FAERS Safety Report 16772009 (Version 1)
Quarter: 2019Q3

REPORT INFORMATION
  Report Type: Spontaneous
  Country: JP (occurrence: JP)
  Receive Date: 20190904
  Receipt Date: 20190904
  Transmission Date: 20191005
  Serious: Yes (Death)
  Sender: FDA-Public Use
  Company Number: JP-MYLANLABS-2019M1082680

PATIENT
  Age: 64 Year
  Sex: Female

DRUGS (2)
  1. CARBOPLATIN. [Suspect]
     Active Substance: CARBOPLATIN
     Indication: OVARIAN ENDOMETRIOID CARCINOMA
     Dosage: FOUR CYCLES OF CHEMOTHERAPY
     Route: 065
     Dates: start: 2017
  2. PACLITAXEL. [Suspect]
     Active Substance: PACLITAXEL
     Indication: OVARIAN ENDOMETRIOID CARCINOMA
     Dosage: FOUR CYCLES OF CHEMOTHERAPY
     Route: 065
     Dates: start: 2017

REACTIONS (2)
  - Lymphoma transformation [Fatal]
  - Double hit lymphoma [Fatal]

NARRATIVE: CASE EVENT DATE: 2017
